FAERS Safety Report 7374948-2 (Version None)
Quarter: 2011Q1

REPORT INFORMATION
  Report Type: 
  Country: None (occurrence: None)
  Receive Date: 20110325
  Receipt Date: 20110314
  Transmission Date: 20110831
  Serious: Yes (Hospitalization, Other)
  Sender: FDA-Public Use
  Company Number: PHFR2010GB05212

PATIENT
  Sex: Female

DRUGS (7)
  1. ARIPIPRAZOLE [Concomitant]
     Dosage: UNK DF, UNK
  2. CLOZARIL [Suspect]
     Dosage: UNK MG, UNK
     Route: 048
     Dates: start: 20110118
  3. RIBAVIRIN [Concomitant]
     Dosage: 600 MG AT NIGHT
  4. CLOZARIL [Suspect]
     Indication: SCHIZOPHRENIA
     Dosage: UNK MG, UNK
     Route: 048
     Dates: start: 20080130, end: 20101103
  5. INTERFERON [Concomitant]
     Dosage: UNK DF, UNK
  6. PEGASYS [Concomitant]
     Dosage: 180 UG / WEEK
  7. ANTIVIRALS NOS [Suspect]
     Dosage: UNK DF, UNK

REACTIONS (12)
  - HEART RATE INCREASED [None]
  - NASOPHARYNGITIS [None]
  - WHITE BLOOD CELL COUNT DECREASED [None]
  - CANDIDIASIS [None]
  - NEUTROPHIL COUNT DECREASED [None]
  - PLATELET COUNT DECREASED [None]
  - HAEMOGLOBIN DECREASED [None]
  - LYMPHADENOPATHY [None]
  - OROPHARYNGEAL PAIN [None]
  - MENTAL IMPAIRMENT [None]
  - SCHIZOPHRENIA [None]
  - HEPATITIS C [None]
